FAERS Safety Report 20141633 (Version 1)
Quarter: 2021Q4

REPORT INFORMATION
  Report Type: Spontaneous
  Country: US (occurrence: US)
  Receive Date: 20211202
  Receipt Date: 20211202
  Transmission Date: 20220303
  Serious: Yes (Other)
  Sender: FDA-Public Use
  Company Number: US-GLAXOSMITHKLINE-USCH2021086110

PATIENT
  Age: 63 Year
  Sex: Female

DRUGS (1)
  1. TUMS SMOOTHIES [Suspect]
     Active Substance: CALCIUM CARBONATE
     Indication: Dyspepsia
     Dosage: UNK
     Dates: start: 20211001, end: 20211120

REACTIONS (1)
  - Atrial fibrillation [Recovered/Resolved]

NARRATIVE: CASE EVENT DATE: 20211001
